FAERS Safety Report 9723221 (Version 2)
Quarter: 2015Q3

REPORT INFORMATION
  Report Type: Spontaneous
  Country: US (occurrence: US)
  Receive Date: 20131202
  Receipt Date: 20150727
  Transmission Date: 20151125
  Serious: Yes (Hospitalization)
  Sender: FDA-Public Use
  Company Number: US-GILEAD-2008-0016826

PATIENT
  Sex: Male

DRUGS (6)
  1. APTIVUS [Concomitant]
     Active Substance: TIPRANAVIR
     Dates: start: 200603
  2. TRUVADA [Suspect]
     Active Substance: EMTRICITABINE\TENOFOVIR DISOPROXIL FUMARATE
     Indication: HIV INFECTION
     Dates: start: 200603
  3. FUZEON [Concomitant]
     Active Substance: ENFUVIRTIDE
     Dates: start: 200603
  4. PREZISTA [Concomitant]
     Active Substance: DARUNAVIR ETHANOLATE
     Dates: start: 200703
  5. ZERIT [Concomitant]
     Active Substance: STAVUDINE
     Dates: start: 200603
  6. ISENTRESS [Concomitant]
     Active Substance: RALTEGRAVIR POTASSIUM
     Dates: start: 200703

REACTIONS (3)
  - Renal impairment [Unknown]
  - Blood creatinine increased [Unknown]
  - Glomerular filtration rate decreased [Unknown]
